FAERS Safety Report 6911692-7 (Version None)
Quarter: 2010Q3

REPORT INFORMATION
  Report Type: 
  Country: None (occurrence: None)
  Receive Date: 20100806
  Receipt Date: 20100728
  Transmission Date: 20110219
  Serious: Yes (Hospitalization)
  Sender: FDA-Public Use
  Company Number: FR-BAYER-201034263GPV

PATIENT
  Age: 38 Year
  Sex: Male

DRUGS (8)
  1. CIFLOX [Suspect]
     Indication: URINARY TRACT INFECTION
     Route: 048
     Dates: start: 20091227
  2. PREVISCAN [Interacting]
     Indication: PERIPHERAL ISCHAEMIA
     Route: 048
     Dates: start: 20070501, end: 20100127
  3. SMECTA [Concomitant]
  4. LOXEN [Concomitant]
  5. IMODIUM [Concomitant]
  6. NEXIUM [Concomitant]
  7. DOLIPRANE [Concomitant]
  8. ZOLOFT [Concomitant]

REACTIONS (5)
  - EPISTAXIS [None]
  - GINGIVAL BLEEDING [None]
  - HAEMATEMESIS [None]
  - HAEMORRHAGIC ANAEMIA [None]
  - INTERNATIONAL NORMALISED RATIO INCREASED [None]
